FAERS Safety Report 7809062-2 (Version None)
Quarter: 2011Q4

REPORT INFORMATION
  Report Type: 
  Country: None (occurrence: None)
  Receive Date: 20111012
  Receipt Date: 20111011
  Transmission Date: 20120403
  Serious: Yes (Other)
  Sender: FDA-Public Use
  Company Number: US-JNJFOC-20091103750

PATIENT
  Sex: Female
  Weight: 54.43 kg

DRUGS (22)
  1. PROTONIX [Concomitant]
     Indication: GASTROINTESTINAL DISORDER THERAPY
     Route: 065
  2. NUCYNTA [Concomitant]
     Indication: BREAKTHROUGH PAIN
     Dosage: UPTO 4 PER DAY
     Route: 065
  3. VASOTEC [Concomitant]
     Indication: BLOOD PRESSURE
     Dosage: ONE EVERY OTHER DAY
     Route: 065
  4. ASCORBIC ACID [Concomitant]
     Route: 065
  5. SAVELLA [Concomitant]
     Indication: FIBROMYALGIA
     Route: 065
  6. AMBIEN CR [Concomitant]
     Indication: SLEEP DISORDER THERAPY
     Route: 065
  7. ZOFRAN [Concomitant]
     Indication: NAUSEA
     Route: 065
  8. ELAVIL [Concomitant]
     Indication: PAIN
     Route: 065
  9. AMRIX [Concomitant]
     Indication: ANTIINFLAMMATORY THERAPY
     Route: 065
  10. ACTONEL [Concomitant]
     Indication: OSTEOPOROSIS
     Route: 065
  11. CALCIUM CARBONATE [Concomitant]
     Route: 065
  12. PROCARDIA [Concomitant]
     Indication: ANTICOAGULANT THERAPY
     Route: 065
  13. ZONEGRAN [Concomitant]
     Indication: EPILEPSY
     Route: 065
  14. ZONEGRAN [Concomitant]
     Indication: CONVULSION
     Route: 065
  15. MOBIC [Concomitant]
     Indication: MUSCLE RELAXANT THERAPY
     Route: 048
  16. LUNESTA [Concomitant]
     Indication: SLEEP DISORDER THERAPY
     Route: 065
  17. ASPIRIN [Concomitant]
     Route: 065
  18. FISH OIL [Concomitant]
     Route: 065
  19. DURAGESIC-100 [Suspect]
     Indication: ILL-DEFINED DISORDER
     Route: 062
     Dates: start: 20090101
  20. VASOTEC [Concomitant]
     Dosage: ONE EVERY OTHER DAY
     Route: 065
  21. ZETIA [Concomitant]
     Indication: BLOOD CHOLESTEROL
     Route: 065
  22. MULTI-VITAMINS [Concomitant]
     Route: 065

REACTIONS (9)
  - FEELING ABNORMAL [None]
  - NAUSEA [None]
  - MALAISE [None]
  - INAPPROPRIATE SCHEDULE OF DRUG ADMINISTRATION [None]
  - GASTROINTESTINAL INFECTION [None]
  - ABDOMINAL RIGIDITY [None]
  - PRODUCT QUALITY ISSUE [None]
  - INCORRECT DOSE ADMINISTERED [None]
  - PAIN [None]
